FAERS Safety Report 19749971 (Version 1)
Quarter: 2021Q3

REPORT INFORMATION
  Report Type: Spontaneous
  Country: US (occurrence: US)
  Receive Date: 20210824
  Receipt Date: 20210824
  Transmission Date: 20211014
  Serious: Yes (Hospitalization)
  Sender: FDA-Public Use
  Company Number: None

PATIENT
  Age: 18 Year
  Sex: Female
  Weight: 85.8 kg

DRUGS (7)
  1. BETAMETHASONE DIPROPIONATE (DIPROLENE) 0.05 % OINTMENT [Concomitant]
  2. STELARA [Suspect]
     Active Substance: USTEKINUMAB
  3. PREDNISONE. [Concomitant]
     Active Substance: PREDNISONE
  4. PANTOPRAZOLE [Concomitant]
     Active Substance: PANTOPRAZOLE
  5. STELARA [Concomitant]
     Active Substance: USTEKINUMAB
  6. AZELASTINE (OPTIVAR) 0.05 % OPHTHALMIC SOLUTION [Concomitant]
     Dosage: ?          OTHER DOSE:1 DROP;?
  7. ERGOCALCIFEROL (ERGOCALCIFEROL) 50,000?UNIT CAPSULE [Concomitant]
     Dosage: ?          OTHER DOSE:1 CAP ;?

REACTIONS (5)
  - Pyoderma gangrenosum [None]
  - Fistula [None]
  - Keratoconus [None]
  - Vision blurred [None]
  - Pain [None]

NARRATIVE: CASE EVENT DATE: 20190612
